FAERS Safety Report 9405687 (Version 1)
Quarter: 2013Q3

REPORT INFORMATION
  Report Type: Spontaneous
  Country: US (occurrence: US)
  Receive Date: 20130717
  Receipt Date: 20130717
  Transmission Date: 20140515
  Serious: No
  Sender: FDA-Public Use
  Company Number: US-009507513-1307USA002578

PATIENT
  Sex: 0

DRUGS (1)
  1. ZEMURON [Suspect]
     Dosage: UNK

REACTIONS (1)
  - Drug effect decreased [Unknown]
